FAERS Safety Report 5725429-0 (Version None)
Quarter: 2008Q2

REPORT INFORMATION
  Report Type: 
  Country: None (occurrence: None)
  Receive Date: 20080501
  Receipt Date: 20080420
  Transmission Date: 20081010
  Serious: Yes (Hospitalization)
  Sender: FDA-Public Use
  Company Number: GB-BAUSCH-2008BL001824

PATIENT
  Age: 39 Year
  Sex: Male

DRUGS (8)
  1. ALBUTEROL [Suspect]
     Indication: RESPIRATORY DISTRESS
  2. ALBUTEROL [Suspect]
     Route: 042
  3. PREDNISOLONE [Concomitant]
  4. AMOXICILLIN [Concomitant]
  5. CORTICOSTEROIDS [Concomitant]
  6. IPRATROPIUM BROMIDE [Concomitant]
     Indication: RESPIRATORY DISTRESS
  7. HYDROCORTISONE [Concomitant]
     Indication: RESPIRATORY DISTRESS
  8. MAGNESIUM SULFATE [Concomitant]
     Indication: RESPIRATORY DISTRESS

REACTIONS (2)
  - HYPERCAPNIA [None]
  - LACTIC ACIDOSIS [None]
